FAERS Safety Report 13426603 (Version 2)
Quarter: 2017Q2

REPORT INFORMATION
  Report Type: Spontaneous
  Country: US (occurrence: US)
  Receive Date: 20170411
  Receipt Date: 20170518
  Transmission Date: 20170830
  Serious: Yes (Hospitalization, Other)
  Sender: FDA-Public Use
  Company Number: US-AMGEN-USASP2017052430

PATIENT
  Age: 68 Year
  Sex: Female
  Weight: 122.1 kg

DRUGS (8)
  1. NPLATE [Suspect]
     Active Substance: ROMIPLOSTIM
     Dosage: 2 MUG/KG, QWK
     Route: 058
     Dates: start: 20170124
  2. COUMADIN [Concomitant]
     Active Substance: WARFARIN SODIUM
     Indication: PULMONARY EMBOLISM
     Route: 048
  3. AVAPRO [Concomitant]
     Active Substance: IRBESARTAN
     Route: 048
  4. SYNTHROID [Concomitant]
     Active Substance: LEVOTHYROXINE SODIUM
     Route: 048
  5. NPLATE [Suspect]
     Active Substance: ROMIPLOSTIM
     Indication: IMMUNE THROMBOCYTOPENIC PURPURA
     Dosage: 1 MUG/KG, QWK
     Route: 058
     Dates: start: 2013
  6. EFFEXOR [Concomitant]
     Active Substance: VENLAFAXINE HYDROCHLORIDE
     Route: 048
  7. HUMALOG [Concomitant]
     Active Substance: INSULIN LISPRO
     Route: 058
  8. LANTUS [Concomitant]
     Active Substance: INSULIN GLARGINE
     Route: 058

REACTIONS (2)
  - Petechiae [Unknown]
  - Platelet count abnormal [Recovering/Resolving]

NARRATIVE: CASE EVENT DATE: 201701
